FAERS Safety Report 9508172 (Version 1)
Quarter: 2013Q3

REPORT INFORMATION
  Report Type: Spontaneous
  Country: US (occurrence: US)
  Receive Date: 20130909
  Receipt Date: 20130909
  Transmission Date: 20140515
  Serious: No
  Sender: FDA-Public Use
  Company Number: US-PFIZER INC-2013256287

PATIENT
  Age: 60 Year
  Sex: Male
  Weight: 81.63 kg

DRUGS (5)
  1. VIAGRA [Suspect]
     Indication: ERECTILE DYSFUNCTION
     Dosage: 100 MG, AS NEEDED
     Route: 048
  2. VIAGRA [Suspect]
     Dosage: 150 MG, AS NEEDED
     Route: 048
  3. LIPITOR [Concomitant]
     Dosage: UNK
  4. XANAX [Concomitant]
     Dosage: UNK
  5. BUPROPION [Concomitant]
     Indication: DEPRESSION
     Dosage: UNK

REACTIONS (1)
  - Drug ineffective [Unknown]
